FAERS Safety Report 11855815 (Version 2)
Quarter: 2016Q1

REPORT INFORMATION
  Report Type: Spontaneous
  Country: JP (occurrence: JP)
  Receive Date: 20151221
  Receipt Date: 20160120
  Transmission Date: 20160526
  Serious: Yes (Life-Threatening, Hospitalization)
  Sender: FDA-Public Use
  Company Number: JP-MYLANLABS-2015M1045573

PATIENT

DRUGS (6)
  1. BEVACIZUMAB [Suspect]
     Active Substance: BEVACIZUMAB
     Indication: COLON CANCER RECURRENT
     Route: 065
  2. CAPECITABINE. [Concomitant]
     Active Substance: CAPECITABINE
     Indication: COLON CANCER RECURRENT
     Dosage: CAPEOX REGIMEN
     Route: 065
  3. OXALIPLATIN MYLAN [Suspect]
     Active Substance: OXALIPLATIN
     Indication: COLON CANCER RECURRENT
     Dosage: AS PART OF MFOLFOX6 AND CAPEOX REGIMEN
     Route: 065
  4. ZHONGREN FU AN [Concomitant]
     Indication: COLON CANCER RECURRENT
     Dosage: FOLFIRI AND MFOLFOX6
     Route: 065
  5. FOLINIC ACID [Concomitant]
     Active Substance: LEUCOVORIN
     Indication: COLON CANCER RECURRENT
     Dosage: FOLFIRI AND MFOLFOX6
     Route: 065
  6. IRINOTECAN [Concomitant]
     Active Substance: IRINOTECAN
     Indication: COLON CANCER RECURRENT
     Dosage: FOLFIRI REGIMEN
     Route: 065

REACTIONS (1)
  - Gastrointestinal perforation [Recovered/Resolved]
